FAERS Safety Report 7069558-0 (Version None)
Quarter: 2010Q4

REPORT INFORMATION
  Report Type: 
  Country: None (occurrence: None)
  Receive Date: 20101028
  Receipt Date: 20100319
  Transmission Date: 20110411
  Serious: No
  Sender: FDA-Public Use
  Company Number: US-WYE-H14120810

PATIENT
  Age: 57 Year
  Sex: Female
  Weight: 80.81 kg

DRUGS (6)
  1. ADVIL COLD AND SINUS [Suspect]
     Indication: NASOPHARYNGITIS
     Dosage: 2 LIQUI-GELS TWICE DAILY
     Route: 048
  2. KLONOPIN [Concomitant]
  3. ERGOCALCIFEROL [Concomitant]
  4. ASCORBIC ACID/ERGOCALCIFEROL/FOLIC ACID/RETINOL/TOCOPHEROL/VITAMIN B N [Concomitant]
  5. MUCINEX [Concomitant]
  6. LYRICA [Concomitant]

REACTIONS (1)
  - DRUG EFFECT DECREASED [None]
